FAERS Safety Report 8987775 (Version 4)
Quarter: 2013Q3

REPORT INFORMATION
  Report Type: Spontaneous
  Country: JP (occurrence: JP)
  Receive Date: 20121227
  Receipt Date: 20130926
  Transmission Date: 20140515
  Serious: Yes (Other)
  Sender: FDA-Public Use
  Company Number: JP-PFIZER INC-2012281858

PATIENT
  Age: 78 Year
  Sex: Female

DRUGS (2)
  1. LYRICA [Suspect]
     Indication: NEURALGIA
     Dosage: 75 MG, 2X/DAY (AFTER BREAKFAST AND AFTER DINNER)
     Route: 048
     Dates: start: 201210
  2. LYRICA [Suspect]
     Indication: TRIGEMINAL NEURALGIA

REACTIONS (4)
  - Hypothyroidism [Unknown]
  - Hyperkalaemia [Unknown]
  - Weight increased [Recovered/Resolved]
  - Oedema peripheral [Recovered/Resolved]
